FAERS Safety Report 11223345 (Version 4)
Quarter: 2015Q4

REPORT INFORMATION
  Report Type: Spontaneous
  Country: JP (occurrence: JP)
  Receive Date: 20150627
  Receipt Date: 20151021
  Transmission Date: 20160304
  Serious: Yes (Other)
  Sender: FDA-Public Use
  Company Number: JP-009507513-1506JPN010643

PATIENT
  Age: 36 Year
  Sex: Female

DRUGS (2)
  1. REBETOL [Suspect]
     Active Substance: RIBAVIRIN
     Indication: CHRONIC HEPATITIS C
     Dosage: 600 MG, BID
     Route: 048
     Dates: start: 20141106, end: 20150421
  2. FERON [Suspect]
     Active Substance: INTERFERON BETA
     Indication: CHRONIC HEPATITIS C
     Dosage: 6 THOUSAND-MILLION UNIT, QD
     Route: 041
     Dates: start: 20141106, end: 20150421

REACTIONS (2)
  - Maternal exposure before pregnancy [Recovered/Resolved]
  - Abortion induced [Unknown]

NARRATIVE: CASE EVENT DATE: 20150702
